FAERS Safety Report 4772246-4 (Version None)
Quarter: 2005Q3

REPORT INFORMATION
  Report Type: 
  Country: None (occurrence: None)
  Receive Date: 20050919
  Receipt Date: 20050415
  Transmission Date: 20060218
  Serious: No
  Sender: FDA-Public Use
  Company Number: US-BRISTOL-MYERS SQUIBB COMPANY-12937041

PATIENT
  Age: 47 Year
  Sex: Male
  Weight: 47 kg

DRUGS (1)
  1. DEFINITY [Suspect]
     Indication: CONGESTIVE CARDIOMYOPATHY
     Route: 040
     Dates: start: 20050415, end: 20050415

REACTIONS (1)
  - FLANK PAIN [None]
